FAERS Safety Report 7815032-0 (Version None)
Quarter: 2011Q4

REPORT INFORMATION
  Report Type: 
  Country: None (occurrence: None)
  Receive Date: 20111012
  Receipt Date: 20110930
  Transmission Date: 20120403
  Serious: Yes (Hospitalization, Other)
  Sender: FDA-Public Use
  Company Number: CIP11000504

PATIENT
  Age: 82 Year
  Sex: Female

DRUGS (14)
  1. IMIPRAMINE [Concomitant]
  2. ALPRAZOLAM [Concomitant]
  3. ACTONEL [Suspect]
     Dosage: 35 MG ONCE WEEKLY, ORAL
     Route: 048
     Dates: start: 20030823, end: 20050601
  4. FOSAMAX [Suspect]
     Indication: OSTEOPENIA
     Dosage: 10 MG DAILY, ORAL
     Route: 048
     Dates: start: 20010918, end: 20030801
  5. ASPIRIN [Concomitant]
  6. COZAAR [Concomitant]
  7. GLUCOSAMINE [Concomitant]
  8. CLOBETASOL 0.05% (CLOBETASOL PROPIONATE) [Concomitant]
  9. DETROL LA [Concomitant]
  10. CALCIUM CARBONATE [Concomitant]
  11. HYDROCORTISONE [Concomitant]
  12. FOSAMAX [Suspect]
     Dosage: 70 MG ONCE WEEKLY, ORAL
     Route: 048
     Dates: start: 20050621, end: 20080201
  13. CIPRO [Concomitant]
  14. COUMADIN [Concomitant]

REACTIONS (10)
  - IMPAIRED HEALING [None]
  - FRACTURE DISPLACEMENT [None]
  - FEMUR FRACTURE [None]
  - PATHOLOGICAL FRACTURE [None]
  - ANAEMIA POSTOPERATIVE [None]
  - VOMITING [None]
  - FALL [None]
  - ARTHRALGIA [None]
  - EMOTIONAL DISTRESS [None]
  - OEDEMA PERIPHERAL [None]
